FAERS Safety Report 6174635-2 (Version None)
Quarter: 2009Q2

REPORT INFORMATION
  Report Type: 
  Country: None (occurrence: None)
  Receive Date: 20090430
  Receipt Date: 20090429
  Transmission Date: 20091009
  Serious: Yes (Hospitalization)
  Sender: FDA-Public Use
  Company Number: JP-SANOFI-SYNTHELABO-A01200903646

PATIENT
  Sex: Male
  Weight: 50 kg

DRUGS (10)
  1. DEXART [Concomitant]
     Dates: start: 20080922
  2. GRANISETRON HCL [Concomitant]
     Dates: start: 20080922
  3. DECADRON [Concomitant]
     Dates: start: 20080923
  4. SENNARIDE [Concomitant]
     Dates: start: 20080807
  5. MAGNESIUM OXIDE [Concomitant]
     Dates: start: 20080807
  6. CALCIUM LEVOFOLINATE [Concomitant]
     Dates: start: 20080922
  7. FLUOROURACIL [Suspect]
     Route: 042
  8. AVASTIN [Suspect]
     Route: 041
  9. PARIET [Concomitant]
     Dates: start: 20081017
  10. ELPLAT [Suspect]
     Indication: RECTAL CANCER METASTATIC
     Route: 041

REACTIONS (4)
  - GASTROINTESTINAL PERFORATION [None]
  - NEUTROPHIL COUNT DECREASED [None]
  - PLATELET COUNT DECREASED [None]
  - WHITE BLOOD CELL COUNT DECREASED [None]
